FAERS Safety Report 10186402 (Version 1)
Quarter: 2014Q2

REPORT INFORMATION
  Report Type: Spontaneous
  Country: US (occurrence: US)
  Receive Date: 20140521
  Receipt Date: 20140521
  Transmission Date: 20141212
  Serious: No
  Sender: FDA-Public Use
  Company Number: US-ASTRAZENECA-2013SE93113

PATIENT
  Age: 82 Year
  Sex: Male
  Weight: 77.1 kg

DRUGS (4)
  1. PULMICORT FLEXHALER [Suspect]
     Indication: DYSPNOEA
     Dosage: 360 MCG BID
     Route: 055
     Dates: start: 2012
  2. LOSARTAN [Concomitant]
     Indication: BLOOD PRESSURE ABNORMAL
     Route: 048
  3. ASPIRIN [Concomitant]
     Indication: CARDIAC DISORDER
     Route: 048
  4. MAGNESIUM [Concomitant]
     Route: 048

REACTIONS (3)
  - Asthma [Unknown]
  - Chronic obstructive pulmonary disease [Unknown]
  - Circumstance or information capable of leading to medication error [Unknown]
